FAERS Safety Report 9083659 (Version 4)
Quarter: 2013Q2

REPORT INFORMATION
  Report Type: Spontaneous
  Country: JP (occurrence: JP)
  Receive Date: 20130218
  Receipt Date: 20130410
  Transmission Date: 20140414
  Serious: Yes (Life-Threatening, Other)
  Sender: FDA-Public Use
  Company Number: PHHY2013JP015435

PATIENT
  Sex: Male
  Weight: 60 kg

DRUGS (3)
  1. TASIGNA [Suspect]
     Indication: CHRONIC MYELOID LEUKAEMIA
     Dosage: 300 MG, DAILY
     Route: 048
     Dates: start: 20130207, end: 20130211
  2. VASOLAN [Interacting]
     Dosage: 120 MG
     Route: 048
  3. SOTACOR [Interacting]
     Dosage: 40 MG
     Route: 048

REACTIONS (3)
  - Bradycardia [Recovered/Resolved]
  - Ventricular extrasystoles [Unknown]
  - Drug interaction [Unknown]
